FAERS Safety Report 22931211 (Version 3)
Quarter: 2024Q2

REPORT INFORMATION
  Report Type: Spontaneous
  Country: US (occurrence: US)
  Receive Date: 20230911
  Receipt Date: 20240426
  Transmission Date: 20240715
  Serious: Yes (Death, Hospitalization, Other)
  Sender: FDA-Public Use
  Company Number: US-PFIZER INC-202300259122

PATIENT
  Age: 89 Year
  Sex: Male
  Weight: 87.09 kg

DRUGS (2)
  1. VYNDAMAX [Suspect]
     Active Substance: TAFAMIDIS
     Indication: Amyloidosis
     Dosage: ONE PER NIGHT
     Route: 048
     Dates: start: 2019, end: 20240419
  2. VYNDAMAX [Suspect]
     Active Substance: TAFAMIDIS
     Indication: Cardiac amyloidosis
     Dosage: 61 MG, 1X/DAY
     Dates: start: 2020

REACTIONS (9)
  - COVID-19 [Fatal]
  - Pulmonary fibrosis [Fatal]
  - Asthenia [Recovered/Resolved]
  - Weight increased [Unknown]
  - Dehydration [Unknown]
  - Weight decreased [Not Recovered/Not Resolved]
  - Cardiac infection [Unknown]
  - Feeding disorder [Unknown]
  - Blood disorder [Recovered/Resolved]

NARRATIVE: CASE EVENT DATE: 20240101
